FAERS Safety Report 24328403 (Version 1)
Quarter: 2024Q3

REPORT INFORMATION
  Report Type: Spontaneous
  Country: AR (occurrence: AR)
  Receive Date: 20240917
  Receipt Date: 20240917
  Transmission Date: 20241017
  Serious: Yes (Other)
  Sender: PFIZER
  Company Number: AR-PFIZER INC-202400257369

PATIENT
  Age: 54 Year
  Sex: Female

DRUGS (1)
  1. IBRANCE [Suspect]
     Active Substance: PALBOCICLIB
     Indication: Breast cancer metastatic
     Dosage: 125 MG (DAILY, 3X1 SCHEME)
     Dates: start: 20220616

REACTIONS (3)
  - Cervical vertebral fracture [Unknown]
  - Dizziness [Unknown]
  - Ear discomfort [Unknown]
